FAERS Safety Report 5417807-4 (Version None)
Quarter: 2007Q3

REPORT INFORMATION
  Report Type: 
  Country: None (occurrence: None)
  Receive Date: 20070817
  Receipt Date: 20070815
  Transmission Date: 20080115
  Serious: Yes (Hospitalization)
  Sender: FDA-Public Use
  Company Number: PHEH2007US09277

PATIENT
  Age: 47 Year
  Sex: Female

DRUGS (8)
  1. ZELNORM [Suspect]
     Indication: IRRITABLE BOWEL SYNDROME
     Dosage: 6 MG, BID
     Dates: start: 20040308, end: 20070501
  2. MOTRIN [Concomitant]
     Dosage: 800 MG, QID
  3. GLUCOPHAGE [Concomitant]
     Dosage: 500 MG, UNK
  4. AMARYL [Concomitant]
  5. ENALAPRIL [Concomitant]
     Dosage: 20 MG, QD
  6. DYAZIDE [Concomitant]
  7. TRAZODONE HCL [Concomitant]
     Dosage: 50 MG, UNK
  8. NEXIUM [Concomitant]
     Dosage: 40 MG, UNK

REACTIONS (3)
  - MALAISE [None]
  - PARAESTHESIA [None]
  - TRANSIENT ISCHAEMIC ATTACK [None]
